FAERS Safety Report 7249231-6 (Version None)
Quarter: 2011Q1

REPORT INFORMATION
  Report Type: 
  Country: None (occurrence: None)
  Receive Date: 20110128
  Receipt Date: 20101201
  Transmission Date: 20110831
  Serious: Yes (Death)
  Sender: FDA-Public Use
  Company Number: NL-BAYER-2010-003283

PATIENT
  Sex: Male
  Weight: 84 kg

DRUGS (1)
  1. ASPIRIN [Suspect]
     Indication: ISCHAEMIC HEART DISEASE PROPHYLAXIS
     Dosage: 81 MG, UNK
     Route: 048

REACTIONS (3)
  - BRAIN DEATH [None]
  - CEREBRAL HAEMORRHAGE [None]
  - COMA [None]
